FAERS Safety Report 14868233 (Version 2)
Quarter: 2018Q2

REPORT INFORMATION
  Report Type: Report from Study
  Country: SE (occurrence: SE)
  Receive Date: 20180509
  Receipt Date: 20180528
  Transmission Date: 20180711
  Serious: Yes (Hospitalization)
  Sender: FDA-Public Use
  Company Number: SE-BRISTOL-MYERS SQUIBB COMPANY-BMS-2018-040937

PATIENT
  Age: 13 Year
  Sex: Male
  Weight: 43.5 kg

DRUGS (2)
  1. NIVOLUMAB [Suspect]
     Active Substance: NIVOLUMAB
     Indication: CENTRAL NERVOUS SYSTEM NEOPLASM
     Dosage: 132 MG, UNK
     Route: 042
     Dates: start: 20180418
  2. IPILIMUMAB [Suspect]
     Active Substance: IPILIMUMAB
     Indication: CENTRAL NERVOUS SYSTEM NEOPLASM
     Dosage: 44 MG, UNK
     Route: 042
     Dates: start: 20180418

REACTIONS (1)
  - Diarrhoea [Recovered/Resolved]

NARRATIVE: CASE EVENT DATE: 20180427
